FAERS Safety Report 7367205-1 (Version None)
Quarter: 2011Q1

REPORT INFORMATION
  Report Type: 
  Country: None (occurrence: None)
  Receive Date: 20110322
  Receipt Date: 20110311
  Transmission Date: 20110831
  Serious: Yes (Other)
  Sender: FDA-Public Use
  Company Number: US-JNJFOC-20051005138

PATIENT
  Sex: Female

DRUGS (7)
  1. NAPROXEN [Suspect]
     Indication: ARTHRITIS
  2. IBUPROFEN [Suspect]
     Indication: ARTHRITIS
  3. BEXTRA [Concomitant]
     Indication: ARTHRITIS
  4. CELEBREX [Concomitant]
     Indication: ARTHRITIS
  5. MOBIC [Concomitant]
  6. ASPIRIN [Suspect]
     Indication: ARTHRITIS
  7. FLURBIPROFEN [Suspect]
     Indication: ARTHRITIS

REACTIONS (2)
  - DRUG INEFFECTIVE [None]
  - COLITIS COLLAGENOUS [None]
